FAERS Safety Report 15109284 (Version 1)
Quarter: 2018Q3

REPORT INFORMATION
  Report Type: Report from Study
  Country: US (occurrence: US)
  Receive Date: 20180705
  Receipt Date: 20180705
  Transmission Date: 20181010
  Serious: No
  Sender: FDA-Public Use
  Company Number: PHEH2018US026520

PATIENT
  Sex: Male

DRUGS (1)
  1. GLEEVEC [Suspect]
     Active Substance: IMATINIB MESYLATE
     Indication: PRODUCT USED FOR UNKNOWN INDICATION
     Dosage: 400 MG, UNK
     Route: 065

REACTIONS (7)
  - Arthritis [Unknown]
  - Neck pain [Unknown]
  - Arthralgia [Unknown]
  - Spinal pain [Unknown]
  - Concomitant disease aggravated [Unknown]
  - Insomnia [Unknown]
  - Neuralgia [Unknown]
